FAERS Safety Report 10640728 (Version 1)
Quarter: 2014Q4

REPORT INFORMATION
  Report Type: Spontaneous
  Country: US (occurrence: None)
  Receive Date: 20141205
  Receipt Date: 20141205
  Transmission Date: 20150529
  Serious: Yes (Other)
  Sender: FDA-Public Use
  Company Number: CIO14081445

PATIENT
  Sex: Female

DRUGS (1)
  1. PEPTO-BISMOL [Suspect]
     Active Substance: BISMUTH SUBSALICYLATE\CALCIUM CARBONATE
     Route: 048

REACTIONS (2)
  - Coma [None]
  - Off label use [None]
